FAERS Safety Report 8273712-X (Version None)
Quarter: 2012Q2

REPORT INFORMATION
  Report Type: 
  Country: None (occurrence: None)
  Receive Date: 20120411
  Receipt Date: 20120313
  Transmission Date: 20120825
  Serious: No
  Sender: FDA-Public Use
  Company Number: US-TEVA-328183USA

PATIENT
  Sex: Male

DRUGS (1)
  1. NUVIGIL [Suspect]
     Route: 048

REACTIONS (5)
  - HYPOPHAGIA [None]
  - THERAPEUTIC RESPONSE UNEXPECTED [None]
  - BLOOD ALCOHOL DECREASED [None]
  - ATTENTION DEFICIT/HYPERACTIVITY DISORDER [None]
  - DEPRESSION [None]
